FAERS Safety Report 6891612-4 (Version None)
Quarter: 2010Q3

REPORT INFORMATION
  Report Type: 
  Country: None (occurrence: None)
  Receive Date: 20100731
  Receipt Date: 20070820
  Transmission Date: 20110219
  Serious: Yes (Other)
  Sender: FDA-Public Use
  Company Number: US-PFIZER INC-2007069349

PATIENT
  Sex: Female
  Weight: 147.4 kg

DRUGS (7)
  1. NEURONTIN [Suspect]
     Indication: ARTHRALGIA
     Dates: start: 20070615, end: 20070619
  2. SYNTHROID [Concomitant]
  3. CYTOMEL [Concomitant]
  4. CELEBREX [Concomitant]
  5. PREVACID [Concomitant]
  6. METFORMIN HCL [Concomitant]
  7. SOFTENERS, EMOLLIENTS [Concomitant]

REACTIONS (6)
  - DEPRESSION [None]
  - DISCOMFORT [None]
  - MALAISE [None]
  - OEDEMA PERIPHERAL [None]
  - SUICIDAL IDEATION [None]
  - TREMOR [None]
